FAERS Safety Report 5147897-8 (Version None)
Quarter: 2006Q4

REPORT INFORMATION
  Report Type: 
  Country: None (occurrence: None)
  Receive Date: 20061106
  Receipt Date: 20061023
  Transmission Date: 20070319
  Serious: Yes (Other)
  Sender: FDA-Public Use
  Company Number: 2006091516

PATIENT
  Age: 53 Year
  Sex: Female
  Weight: 53.978 kg

DRUGS (9)
  1. SUTENT [Suspect]
     Indication: METASTATIC RENAL CELL CARCINOMA
     Dosage: 50 MG (50 MG, 1 IN 1 D)
     Dates: start: 20060618
  2. OXYCONTIN [Concomitant]
  3. OXYCODONE HCL [Concomitant]
  4. ARANESP [Concomitant]
  5. RITALIN  - SLOW RELEASE (METHYLPHENIDATE HYDROCHLORIDE) [Concomitant]
  6. LEXAPRO (ESCITRALOPRAM) [Concomitant]
  7. LOPRESSOR [Concomitant]
  8. BENICAR [Concomitant]
  9. IRON [Concomitant]

REACTIONS (8)
  - BLISTER [None]
  - ERYTHEMA [None]
  - GLOSSODYNIA [None]
  - OEDEMA PERIPHERAL [None]
  - ORAL INTAKE REDUCED [None]
  - SKIN EXFOLIATION [None]
  - THERAPY CESSATION [None]
  - WEIGHT DECREASED [None]
